FAERS Safety Report 16578620 (Version 1)
Quarter: 2019Q3

REPORT INFORMATION
  Report Type: Spontaneous
  Country: US (occurrence: US)
  Receive Date: 20190716
  Receipt Date: 20190716
  Transmission Date: 20191004
  Serious: No
  Sender: FDA-Public Use
  Company Number: US-VANDA PHARMACEUTICALS, INC-2019TASUS003046

PATIENT
  Sex: Male

DRUGS (1)
  1. HETLIOZ [Suspect]
     Active Substance: TASIMELTEON
     Indication: NON-24-HOUR SLEEP-WAKE DISORDER
     Dosage: 20 MG, QD
     Route: 048

REACTIONS (6)
  - Abdominal pain upper [Unknown]
  - Feeling abnormal [Unknown]
  - Hepatic function abnormal [Unknown]
  - Renal impairment [Unknown]
  - Headache [Unknown]
  - Micturition disorder [Unknown]
